FAERS Safety Report 19421813 (Version 1)
Quarter: 2021Q2

REPORT INFORMATION
  Report Type: Spontaneous
  Country: US (occurrence: US)
  Receive Date: 20210615
  Receipt Date: 20210615
  Transmission Date: 20210717
  Serious: No
  Sender: FDA-Public Use
  Company Number: None

PATIENT
  Age: 83 Year
  Sex: Male
  Weight: 72 kg

DRUGS (1)
  1. GADOBUTROL (GADOBUTROL) [Suspect]
     Active Substance: GADOBUTROL
     Dosage: ?          OTHER ROUTE:IV?
     Dates: start: 20210318, end: 20210318

REACTIONS (3)
  - Syncope [None]
  - Hypotension [None]
  - Rash erythematous [None]

NARRATIVE: CASE EVENT DATE: 20210318
